FAERS Safety Report 5364333-7 (Version None)
Quarter: 2007Q2

REPORT INFORMATION
  Report Type: 
  Country: None (occurrence: None)
  Receive Date: 20070618
  Receipt Date: 20070606
  Transmission Date: 20071010
  Serious: Yes (Hospitalization)
  Sender: FDA-Public Use
  Company Number: 2007AL002321

PATIENT
  Age: 44 Year
  Sex: Male

DRUGS (7)
  1. DIAZEPAM [Suspect]
     Indication: MYOCARDIAL INFARCTION
     Dosage: 2 MG;QD;PO
     Route: 048
     Dates: start: 20070413, end: 20070419
  2. CLOPIDOGREL [Concomitant]
  3. OMEGA-3-TRIGLYCERIDES [Concomitant]
  4. ATORVASTATIN [Concomitant]
  5. ASPIRIN [Concomitant]
  6. METOPROLOL SUCCINATE [Concomitant]
  7. LANSOPRAZOLE [Concomitant]

REACTIONS (2)
  - PRURITUS [None]
  - RASH MACULO-PAPULAR [None]
